FAERS Safety Report 8913874 (Version 1)
Quarter: 2012Q4

REPORT INFORMATION
  Report Type: 
  Country: US (occurrence: US)
  Receive Date: 20121119
  Receipt Date: 20121119
  Transmission Date: 20130627
  Serious: Yes (Death, Other)
  Sender: FDA-Public Use
  Company Number: US-JNJFOC-20121107759

PATIENT

DRUGS (6)
  1. 2-CDA [Suspect]
     Indication: MANTLE CELL LYMPHOMA RECURRENT
     Dosage: over 2 hours, on days 1 through 5 every 28 days
     Route: 042
  2. 2-CDA [Suspect]
     Indication: MANTLE CELL LYMPHOMA
     Dosage: over 2 hours, on days 1 through 5 every 28 days
     Route: 042
  3. RITUXIMAB [Suspect]
     Indication: MANTLE CELL LYMPHOMA RECURRENT
     Dosage: on day 1 of each cycle
     Route: 042
  4. RITUXIMAB [Suspect]
     Indication: MANTLE CELL LYMPHOMA
     Dosage: on day 1 of each cycle
     Route: 042
  5. FILGRASTIM [Concomitant]
     Indication: PROPHYLAXIS
     Dosage: on days 6 through 15
     Route: 058
  6. PEGFILGRASTIM [Concomitant]
     Indication: PROPHYLAXIS
     Dosage: on day 6
     Route: 058

REACTIONS (5)
  - Death [Fatal]
  - Neutropenia [Unknown]
  - Mantle cell lymphoma [Unknown]
  - Thrombocytopenia [Unknown]
  - Toxicity to various agents [Unknown]
